FAERS Safety Report 10921973 (Version 1)
Quarter: 2015Q1

REPORT INFORMATION
  Report Type: Spontaneous
  Country: US (occurrence: US)
  Receive Date: 20150317
  Receipt Date: 20150317
  Transmission Date: 20150721
  Serious: Yes (Other)
  Sender: FDA-Public Use
  Company Number: US-ASTRAZENECA-2015SE23146

PATIENT
  Age: 52 Year
  Sex: Male
  Weight: 77.1 kg

DRUGS (10)
  1. MORPHINE SULFATE. [Concomitant]
     Active Substance: MORPHINE SULFATE
     Indication: PAIN
  2. NEXIUM [Suspect]
     Active Substance: ESOMEPRAZOLE MAGNESIUM
     Indication: ABDOMINAL DISCOMFORT
     Route: 048
     Dates: start: 2003
  3. PERCOCET [Concomitant]
     Active Substance: ACETAMINOPHEN\OXYCODONE HYDROCHLORIDE
     Indication: PAIN
     Dosage: 10/325MG 1 TABLET 6 TIMES PER DAY
  4. QVAR [Concomitant]
     Active Substance: BECLOMETHASONE DIPROPIONATE
  5. NEXIUM [Suspect]
     Active Substance: ESOMEPRAZOLE MAGNESIUM
     Indication: ULCER
     Route: 048
     Dates: start: 2003
  6. XANAX [Concomitant]
     Active Substance: ALPRAZOLAM
     Indication: ANXIETY
     Dosage: EVERY DAY
  7. PRILOSEC [Suspect]
     Active Substance: OMEPRAZOLE MAGNESIUM
     Route: 048
  8. ZOLPINEX [Concomitant]
  9. NEXIUM [Suspect]
     Active Substance: ESOMEPRAZOLE MAGNESIUM
     Indication: GASTROOESOPHAGEAL REFLUX DISEASE
     Route: 048
     Dates: start: 2003
  10. TRAZODONE [Concomitant]
     Active Substance: TRAZODONE HYDROCHLORIDE

REACTIONS (23)
  - Headache [Unknown]
  - Product use issue [Unknown]
  - Road traffic accident [Unknown]
  - Decreased appetite [Unknown]
  - Body height decreased [Unknown]
  - Sciatica [Unknown]
  - Pancreatic disorder [Unknown]
  - Ulcer [Unknown]
  - Haematemesis [Unknown]
  - Anxiety [Unknown]
  - Neck pain [Unknown]
  - Drug ineffective [Unknown]
  - Back injury [Unknown]
  - Sleep disorder [Unknown]
  - Depression [Unknown]
  - Liver disorder [Unknown]
  - Back pain [Unknown]
  - Gastrointestinal disorder [Unknown]
  - Emphysema [Unknown]
  - Hepatitis C [Unknown]
  - Hepatic steatosis [Unknown]
  - Feeding disorder [Unknown]
  - Dysuria [Unknown]

NARRATIVE: CASE EVENT DATE: 2003
